FAERS Safety Report 16880359 (Version 1)
Quarter: 2019Q3

REPORT INFORMATION
  Report Type: Spontaneous
  Country: US (occurrence: US)
  Receive Date: 20190807
  Receipt Date: 20190807
  Transmission Date: 20191007
  Serious: No
  Sender: FDA-Public Use
  Company Number: None

PATIENT
  Age: 54 Year
  Sex: Female
  Weight: 63.96 kg

DRUGS (1)
  1. ESTRADIOL TABLET [Suspect]
     Active Substance: ESTRADIOL
     Indication: ATROPHIC VULVOVAGINITIS
     Dosage: ?          OTHER FREQUENCY:TAB;?
     Route: 067

REACTIONS (4)
  - Pruritus [None]
  - Skin irritation [None]
  - Swelling [None]
  - Erythema [None]

NARRATIVE: CASE EVENT DATE: 20190712
